FAERS Safety Report 16154933 (Version 4)
Quarter: 2019Q2

REPORT INFORMATION
  Report Type: Spontaneous
  Country: JP (occurrence: JP)
  Receive Date: 20190403
  Receipt Date: 20190602
  Transmission Date: 20190711
  Serious: Yes (Other)
  Sender: FDA-Public Use
  Company Number: PHJP2019JP003816

PATIENT
  Age: 43 Year
  Sex: Female

DRUGS (3)
  1. SANDIMMUN INFUSION [Suspect]
     Active Substance: CYCLOSPORINE
     Indication: HAEMOPHAGOCYTIC LYMPHOHISTIOCYTOSIS
     Dosage: 250 MG, UNK
     Route: 041
     Dates: start: 201810
  2. PREDNISOLONE. [Concomitant]
     Active Substance: PREDNISOLONE
     Indication: SYSTEMIC LUPUS ERYTHEMATOSUS
     Dosage: 60 MG, QD
     Route: 065
  3. HYDROXYCHLOROQUINE [Concomitant]
     Active Substance: HYDROXYCHLOROQUINE
     Indication: SYSTEMIC LUPUS ERYTHEMATOSUS
     Dosage: UNK
     Route: 065

REACTIONS (3)
  - Hypertensive encephalopathy [Recovering/Resolving]
  - Altered state of consciousness [Unknown]
  - Product use in unapproved indication [Unknown]
